FAERS Safety Report 5445398-0 (Version None)
Quarter: 2007Q3

REPORT INFORMATION
  Report Type: 
  Country: None (occurrence: None)
  Receive Date: 20070906
  Receipt Date: 20070717
  Transmission Date: 20080115
  Serious: No
  Sender: FDA-Public Use
  Company Number: A0655888A

PATIENT
  Age: 71 Year
  Sex: Female

DRUGS (1)
  1. REQUIP [Suspect]
     Indication: RESTLESS LEGS SYNDROME
     Dosage: 2MG TWICE PER DAY
     Route: 048
     Dates: start: 20070423, end: 20070625

REACTIONS (3)
  - ANXIETY [None]
  - GAMBLING [None]
  - OBSESSIVE-COMPULSIVE DISORDER [None]
